FAERS Safety Report 7559867-0 (Version None)
Quarter: 2011Q2

REPORT INFORMATION
  Report Type: 
  Country: None (occurrence: None)
  Receive Date: 20110617
  Receipt Date: 20110617
  Transmission Date: 20111010
  Serious: Yes (Life-Threatening)
  Sender: FDA-Public Use
  Company Number: None

PATIENT
  Sex: Female
  Weight: 77.1115 kg

DRUGS (1)
  1. VALACYCLOVIR [Suspect]
     Indication: HERPES ZOSTER
     Dosage: 500MG 3 TIMES PER DAY PO
     Route: 048
     Dates: start: 20110518, end: 20110519

REACTIONS (6)
  - HEART RATE INCREASED [None]
  - DRY MOUTH [None]
  - ERYTHEMA [None]
  - DYSPHAGIA [None]
  - TREMOR [None]
  - PRURITUS [None]
